FAERS Safety Report 5031120-9 (Version None)
Quarter: 2006Q2

REPORT INFORMATION
  Report Type: 
  Country: None (occurrence: None)
  Receive Date: 20060619
  Receipt Date: 20060619
  Transmission Date: 20061013
  Serious: Yes (Death, Hospitalization)
  Sender: FDA-Public Use
  Company Number: None

PATIENT
  Age: 64 Year
  Sex: Male
  Weight: 86.1834 kg

DRUGS (12)
  1. CARBOPLATIN [Suspect]
     Indication: SMALL CELL LUNG CANCER STAGE UNSPECIFIED
     Dosage: AUC 6/790MG Q3W IV
     Route: 042
     Dates: start: 20060524, end: 20060524
  2. ETOPOSIDE [Suspect]
     Indication: SMALL CELL LUNG CANCER STAGE UNSPECIFIED
     Dosage: 100MG/M2 198MG Q3W IV
     Route: 042
     Dates: start: 20060524, end: 20060526
  3. IRINOTECAN [Concomitant]
  4. OXALIPLATIN [Concomitant]
  5. NEULASTA [Concomitant]
  6. FENTANYL [Concomitant]
  7. NICOMORPHINE [Concomitant]
  8. KLONOPIN [Concomitant]
  9. ATROVENT [Concomitant]
  10. 02 THERAPY [Concomitant]
  11. FLOMAX [Concomitant]
  12. METFORMIN [Concomitant]

REACTIONS (5)
  - FEBRILE NEUTROPENIA [None]
  - HYPOTENSION [None]
  - PNEUMONIA [None]
  - REFUSAL OF TREATMENT BY RELATIVE [None]
  - RENAL FAILURE ACUTE [None]
